FAERS Safety Report 6266029-6 (Version None)
Quarter: 2009Q3

REPORT INFORMATION
  Report Type: 
  Country: None (occurrence: None)
  Receive Date: 20090713
  Receipt Date: 20090630
  Transmission Date: 20100115
  Serious: Yes (Death, Hospitalization, Disabling)
  Sender: FDA-Public Use
  Company Number: CH-MERCK-0807CHE00003

PATIENT
  Age: 70 Year
  Sex: Female
  Weight: 95 kg

DRUGS (3)
  1. JANUVIA [Suspect]
     Indication: DIABETES MELLITUS
     Route: 048
     Dates: start: 20080303, end: 20080620
  2. INSULIN [Concomitant]
     Indication: DIABETES MELLITUS
     Route: 058
     Dates: end: 20080620
  3. PRIMAXIN [Suspect]
     Indication: INFECTION
     Route: 051
     Dates: start: 20080615, end: 20080619

REACTIONS (3)
  - INFECTION [None]
  - MYOCARDIAL INFARCTION [None]
  - PYREXIA [None]
